FAERS Safety Report 11135685 (Version 2)
Quarter: 2015Q2

REPORT INFORMATION
  Report Type: Spontaneous
  Country: JP (occurrence: JP)
  Receive Date: 20150526
  Receipt Date: 20150610
  Transmission Date: 20150821
  Serious: Yes (Hospitalization, Disabling, Other)
  Sender: FDA-Public Use
  Company Number: JP-PFIZER INC-2015097468

PATIENT
  Age: 89 Year
  Sex: Female
  Weight: 37 kg

DRUGS (3)
  1. LYRICA [Suspect]
     Active Substance: PREGABALIN
     Indication: PAIN IN EXTREMITY
     Dosage: 50 MG, DAILY
     Route: 048
     Dates: start: 20131204, end: 20131208
  2. LYRICA [Suspect]
     Active Substance: PREGABALIN
     Indication: HYPOAESTHESIA
     Dosage: 150 MG, DAILY
     Route: 048
     Dates: start: 20131209, end: 201401
  3. LYRICA [Suspect]
     Active Substance: PREGABALIN
     Dosage: 50 MG, DAILY
     Route: 048
     Dates: start: 201401, end: 201401

REACTIONS (8)
  - Dyskinesia [Recovering/Resolving]
  - Movement disorder [Recovering/Resolving]
  - Gait disturbance [Not Recovered/Not Resolved]
  - Fall [Recovered/Resolved with Sequelae]
  - Dysstasia [Unknown]
  - Patella fracture [Recovered/Resolved with Sequelae]
  - Nuclear magnetic resonance imaging brain abnormal [Not Recovered/Not Resolved]
  - Hypokalaemia [Recovering/Resolving]

NARRATIVE: CASE EVENT DATE: 20131230
